FAERS Safety Report 5425581-0 (Version None)
Quarter: 2007Q3

REPORT INFORMATION
  Report Type: 
  Country: None (occurrence: None)
  Receive Date: 20070824
  Receipt Date: 20070813
  Transmission Date: 20080115
  Serious: Yes (Other)
  Sender: FDA-Public Use
  Company Number: FR-PFIZER INC-2007065587

PATIENT
  Sex: Female
  Weight: 66.7 kg

DRUGS (1)
  1. CHAMPIX [Suspect]
     Indication: EX-SMOKER
     Route: 048
     Dates: start: 20070724, end: 20070727

REACTIONS (3)
  - COUGH [None]
  - EPISTAXIS [None]
  - HAEMOPTYSIS [None]
